FAERS Safety Report 7888949-9 (Version None)
Quarter: 2011Q4

REPORT INFORMATION
  Report Type: 
  Country: None (occurrence: None)
  Receive Date: 20111103
  Receipt Date: 20111028
  Transmission Date: 20120403
  Serious: Yes (Other)
  Sender: FDA-Public Use
  Company Number: PHHY2010CA85044

PATIENT
  Sex: Female

DRUGS (1)
  1. ZOLEDRONOC ACID [Suspect]
     Indication: OSTEOPOROSIS
     Dates: start: 20101213

REACTIONS (10)
  - NEPHROLITHIASIS [None]
  - ULCER [None]
  - PYREXIA [None]
  - DEAFNESS [None]
  - INFLUENZA LIKE ILLNESS [None]
  - BACK PAIN [None]
  - MYALGIA [None]
  - DYSPEPSIA [None]
  - CHILLS [None]
  - PAIN [None]
